FAERS Safety Report 23356299 (Version 2)
Quarter: 2024Q1

REPORT INFORMATION
  Report Type: Spontaneous
  Country: DE (occurrence: DE)
  Receive Date: 20240102
  Receipt Date: 20240222
  Transmission Date: 20240410
  Serious: Yes (Hospitalization, Other)
  Sender: FDA-Public Use
  Company Number: None

PATIENT
  Age: 35 Year
  Sex: Female

DRUGS (8)
  1. OLANZAPINE [Suspect]
     Active Substance: OLANZAPINE
     Indication: Product used for unknown indication
     Dosage: UNK
     Route: 065
  2. ARIPIPRAZOLE [Suspect]
     Active Substance: ARIPIPRAZOLE
     Indication: Schizophrenia
     Dosage: 10 MILLIGRAM, TABLET, QD (EVERY 1 DAY)
     Route: 048
     Dates: start: 20220818, end: 20220824
  3. ARIPIPRAZOLE [Suspect]
     Active Substance: ARIPIPRAZOLE
     Dosage: 15 MILLIGRAM, TABLET, QD  (EVERY 1 DAY)
     Route: 048
     Dates: start: 20220825, end: 20221213
  4. ARIPIPRAZOLE [Suspect]
     Active Substance: ARIPIPRAZOLE
     Dosage: 10 MILLIGRAM, TABLET, QD (EVERY 1 DAY)
     Route: 048
     Dates: start: 20221214, end: 20221220
  5. ARIPIPRAZOLE [Suspect]
     Active Substance: ARIPIPRAZOLE
     Dosage: 5 MILLIGRAM, TABLET, QD (EVERY 1 DAY)
     Route: 048
     Dates: start: 20221221, end: 20221225
  6. ARIPIPRAZOLE [Suspect]
     Active Substance: ARIPIPRAZOLE
     Dosage: 10 MILLIGRAM, TABLET, QD (EVERY 1 DAY)
     Route: 048
     Dates: start: 20221226, end: 20230103
  7. XARELTO [Concomitant]
     Active Substance: RIVAROXABAN
     Indication: Product used for unknown indication
     Dosage: 20 MILLIGRAM, QD (EVERY 1 DAY)
     Route: 048
     Dates: start: 20220921
  8. RAMIPRIL [Concomitant]
     Active Substance: RAMIPRIL
     Indication: Product used for unknown indication
     Dosage: 5 MILLIGRAM, QD (EVERY 1 DAY)
     Route: 048

REACTIONS (4)
  - Polycystic ovarian syndrome [Unknown]
  - Akathisia [Not Recovered/Not Resolved]
  - Weight increased [Unknown]
  - Condition aggravated [Unknown]

NARRATIVE: CASE EVENT DATE: 20221116
